FAERS Safety Report 9163832 (Version 2)
Quarter: 2013Q2

REPORT INFORMATION
  Report Type: Spontaneous
  Country: BR (occurrence: BR)
  Receive Date: 20130314
  Receipt Date: 20130417
  Transmission Date: 20140414
  Serious: Yes (Other)
  Sender: FDA-Public Use
  Company Number: BR-ASTRAZENECA-2013SE15991

PATIENT
  Age: 582 Month
  Sex: Male

DRUGS (2)
  1. ATACAND HCT [Suspect]
     Dosage: 16/12.5 MG
     Route: 048
     Dates: start: 2009
  2. CRESTOR [Suspect]
     Indication: HYPERCHOLESTEROLAEMIA
     Route: 048
     Dates: start: 2012

REACTIONS (1)
  - Cerebrovascular accident [Recovering/Resolving]
